FAERS Safety Report 5634412-5 (Version None)
Quarter: 2008Q1

REPORT INFORMATION
  Report Type: 
  Country: None (occurrence: None)
  Receive Date: 20080222
  Receipt Date: 20080219
  Transmission Date: 20080703
  Serious: Yes (Hospitalization, Other)
  Sender: FDA-Public Use
  Company Number: US-BRISTOL-MYERS SQUIBB COMPANY-14082887

PATIENT
  Age: 20 Year
  Sex: Male

DRUGS (4)
  1. ABILIFY [Suspect]
     Dates: start: 20070501
  2. QUETIAPINE FUMARATE [Suspect]
     Dates: start: 20070801
  3. LAMOTRIGINE [Suspect]
     Dates: start: 20070201
  4. OLANZAPINE [Suspect]
     Dosage: ON 24-JAN-2007 7.5MG,INCREASED TO 15 MG ON 28-DEC-2007, IN NOV-2007 INCREASED TO 20MG TO 25MG.

REACTIONS (4)
  - DYSTONIA [None]
  - INCONTINENCE [None]
  - MANIA [None]
  - RASH [None]
